FAERS Safety Report 4758445-6 (Version None)
Quarter: 2005Q3

REPORT INFORMATION
  Report Type: 
  Country: None (occurrence: None)
  Receive Date: 20050901
  Receipt Date: 20050812
  Transmission Date: 20060218
  Serious: Yes (Other)
  Sender: FDA-Public Use
  Company Number: GB-BOEHRINGER INGELHEIM PHARMACEUTICALS, INC.-2005-BP-14248YA

PATIENT
  Sex: Male

DRUGS (9)
  1. TAMSULOSIN HYDROCHLORIDE [Suspect]
     Indication: BENIGN PROSTATIC HYPERPLASIA
     Route: 048
     Dates: start: 20020410
  2. ALENDRONATE SODIUM [Concomitant]
     Indication: OSTEOPOROSIS
     Route: 048
     Dates: start: 20020710
  3. CLOPIDOGREL BISULFATE [Concomitant]
  4. LANSOPRAZOLE [Concomitant]
  5. THEOPHYLLINE [Concomitant]
  6. IPRATROPIUM BROMIDE [Concomitant]
  7. LAMOTRIGINE [Concomitant]
  8. SPIRONOLACTONE [Concomitant]
  9. DOTHIEPIN HYDROCHLORIDE [Concomitant]

REACTIONS (2)
  - IRIDOCELE [None]
  - PROCEDURAL COMPLICATION [None]
